FAERS Safety Report 8902748 (Version 1)
Quarter: 2012Q4

REPORT INFORMATION
  Report Type: 
  Country: US (occurrence: US)
  Receive Date: 20121112
  Receipt Date: 20121112
  Transmission Date: 20130627
  Serious: Yes (Hospitalization)
  Sender: FDA-Public Use
  Company Number: US-BAYER-2012-116091

PATIENT
  Age: 51 Year
  Sex: Female

DRUGS (10)
  1. YAZ [Suspect]
     Dosage: UNK
     Dates: end: 20120804
  2. GIANVI [Suspect]
  3. SYNTHROID [Concomitant]
     Dosage: 50 ?g, daily
     Dates: start: 20091028, end: 20120806
  4. RESTASIS [Concomitant]
     Dosage: One drop
     Route: 047
     Dates: start: 20110217, end: 20120806
  5. TRAVATAN [Concomitant]
     Dosage: 1 drop
     Route: 047
     Dates: start: 20110306, end: 20120806
  6. OMEPRAZOLE [Concomitant]
     Dosage: 20 mg, PRN
     Dates: start: 20120806
  7. ZYRTEC [Concomitant]
     Indication: ALLERGIC RHINITIS
     Dosage: 10 mg, daily
     Dates: start: 20120806
  8. MIDRIN [Concomitant]
     Dosage: UNK UNK, PRN
     Dates: start: 20120806
  9. DRISDOL [Concomitant]
     Dosage: UNK UNK, PRN
     Dates: start: 20120806
  10. PREDNISOLONE [Concomitant]
     Indication: R SCIATICA
     Dosage: 10 mg, 12 day dose pack
     Dates: start: 20120723

REACTIONS (4)
  - Pulmonary embolism [None]
  - Deep vein thrombosis [None]
  - Deep vein thrombosis [None]
  - Thrombophlebitis superficial [None]
